FAERS Safety Report 9546803 (Version 1)
Quarter: 2013Q3

REPORT INFORMATION
  Report Type: Spontaneous
  Country: US (occurrence: US)
  Receive Date: 20130924
  Receipt Date: 20130924
  Transmission Date: 20140515
  Serious: Yes (Death, Disabling, Other)
  Sender: FDA-Public Use
  Company Number: US-AMGEN-USASP2013066211

PATIENT
  Age: 59 Year
  Sex: Female

DRUGS (16)
  1. ENBREL [Suspect]
     Indication: RHEUMATOID ARTHRITIS
     Dosage: UNK
     Route: 065
  2. XELJANZ [Suspect]
     Indication: RHEUMATOID ARTHRITIS
     Dosage: 5 MG, BID
     Route: 048
     Dates: start: 20130429
  3. HUMIRA [Suspect]
     Indication: PRODUCT USED FOR UNKNOWN INDICATION
     Dosage: UNK
     Route: 065
  4. REMICADE [Suspect]
     Indication: PRODUCT USED FOR UNKNOWN INDICATION
     Route: 065
  5. ORENCIA [Suspect]
     Indication: PRODUCT USED FOR UNKNOWN INDICATION
     Dosage: UNK
     Route: 065
  6. RITUXAN [Suspect]
     Indication: PRODUCT USED FOR UNKNOWN INDICATION
     Dosage: UNK
     Route: 065
  7. NSAID^S [Suspect]
  8. ACTEMRA [Suspect]
     Indication: PRODUCT USED FOR UNKNOWN INDICATION
     Dosage: UNK
     Route: 065
  9. PLAQUENIL                          /00072602/ [Concomitant]
     Dosage: 200 MG, BID
  10. PREDNISONE [Concomitant]
     Dosage: 7.5 MG, QD
  11. FLEXERIL                           /00428402/ [Concomitant]
     Dosage: 10 MG, BID
  12. IMURAN                             /00001501/ [Concomitant]
     Dosage: 100 MG, AT BED TIME
  13. XARELTO [Concomitant]
     Dosage: UNK
  14. REVATIO [Concomitant]
     Dosage: UNK
  15. LASIX                              /00032601/ [Concomitant]
     Dosage: UNK
  16. COUMADIN                           /00014802/ [Concomitant]
     Dosage: UNK

REACTIONS (38)
  - Death [Fatal]
  - Vulval cancer [Unknown]
  - Pulmonary hypertension [Unknown]
  - Atrial fibrillation [Unknown]
  - Renal failure chronic [Unknown]
  - Walking disability [Unknown]
  - Tendon rupture [Unknown]
  - Knee arthroplasty [Unknown]
  - Ankle operation [Unknown]
  - Shoulder deformity [Unknown]
  - Elbow deformity [Unknown]
  - Wrist deformity [Unknown]
  - Joint contracture [Unknown]
  - Arthralgia [Unknown]
  - Pain [Unknown]
  - Red blood cell sedimentation rate increased [Unknown]
  - C-reactive protein increased [Unknown]
  - Musculoskeletal pain [Unknown]
  - Joint swelling [Unknown]
  - Myalgia [Unknown]
  - Dry mouth [Unknown]
  - Dysphoria [Unknown]
  - Contusion [Unknown]
  - Osteoporosis [Unknown]
  - Drug ineffective [Unknown]
  - Adverse drug reaction [Unknown]
  - Pain in extremity [Unknown]
  - Weight bearing difficulty [Unknown]
  - Dry skin [Unknown]
  - Hypersensitivity [Unknown]
  - Arthropathy [Unknown]
  - Joint range of motion decreased [Unknown]
  - Joint laxity [Unknown]
  - Oedema peripheral [Unknown]
  - Osteoarthritis [Unknown]
  - Obesity [Unknown]
  - Rheumatoid nodule [Unknown]
  - Rheumatoid arthritis [Unknown]
